FAERS Safety Report 4336564-6 (Version None)
Quarter: 2004Q2

REPORT INFORMATION
  Report Type: 
  Country: None (occurrence: None)
  Receive Date: 20040407
  Receipt Date: 20040324
  Transmission Date: 20050107
  Serious: Yes (Death)
  Sender: FDA-Public Use
  Company Number: EWC040338627

PATIENT
  Age: 74 Year
  Sex: Male
  Weight: 50 kg

DRUGS (2)
  1. GEMCITABINE HYDROCHLORIDE                  (GEMCITABINE) [Suspect]
     Indication: BLADDER CANCER
     Dosage: 1500 MG
     Dates: start: 20020930, end: 20030118
  2. CISPLATIN [Concomitant]

REACTIONS (4)
  - ANAEMIA [None]
  - MALIGNANT NEOPLASM PROGRESSION [None]
  - RENAL FAILURE ACUTE [None]
  - THROMBOCYTOPENIA [None]
